FAERS Safety Report 12546847 (Version 1)
Quarter: 2016Q3

REPORT INFORMATION
  Report Type: Spontaneous
  Country: US (occurrence: US)
  Receive Date: 20160711
  Receipt Date: 20160711
  Transmission Date: 20161109
  Serious: Yes (Other)
  Sender: FDA-Public Use
  Company Number: US-TEVA-675487USA

PATIENT
  Sex: Female

DRUGS (1)
  1. ZECUITY [Suspect]
     Active Substance: SUMATRIPTAN SUCCINATE
     Route: 062

REACTIONS (5)
  - Application site dryness [Recovering/Resolving]
  - Application site erythema [Recovering/Resolving]
  - Application site pain [Unknown]
  - Product leakage [Unknown]
  - Application site burn [Recovering/Resolving]
